FAERS Safety Report 6036289-5 (Version None)
Quarter: 2009Q1

REPORT INFORMATION
  Report Type: 
  Country: None (occurrence: None)
  Receive Date: 20090113
  Receipt Date: 20090108
  Transmission Date: 20090719
  Serious: Yes (Hospitalization, Other)
  Sender: FDA-Public Use
  Company Number: PHHY2009TR00972

PATIENT
  Sex: Female
  Weight: 41 kg

DRUGS (21)
  1. EXJADE [Suspect]
     Indication: SERUM FERRITIN INCREASED
     Dosage: 500 MG, BID
     Route: 048
     Dates: start: 20081223, end: 20090105
  2. ETOPOSIDE [Suspect]
     Indication: ACUTE LYMPHOCYTIC LEUKAEMIA
     Dosage: 2700 MG, QD
     Route: 048
     Dates: start: 20081230
  3. DEXTROSE [Concomitant]
     Dosage: UNK
     Dates: start: 20090108
  4. NUTRIFLEX [Concomitant]
     Dosage: 2500ML/DAY
     Dates: start: 20090108
  5. OMEPRAZOLE [Concomitant]
     Dosage: 20 MG, BID
     Route: 042
  6. GAVISCON [Concomitant]
     Dosage: 4 DF, BID
  7. PERFALGAN [Concomitant]
     Dosage: 500 MG, QID
     Route: 042
  8. VITAMIN B6 [Concomitant]
     Dosage: 1 DF, QD
  9. URSO FALK [Concomitant]
     Dosage: 250 MG, QID
  10. CERNEVIT-12 [Concomitant]
     Dosage: EVERY OTHER DAY
  11. TRANSAMIN [Concomitant]
     Dosage: 10 %, UNK
  12. METPAMID [Concomitant]
     Dosage: 2 DF, QID
  13. GRANOCYTE [Concomitant]
     Dosage: 34 MIU, UNK
  14. HAMAMELIS VIRGINIANA EXTRACT [Concomitant]
  15. ISOTONIC SOLUTIONS [Concomitant]
     Dosage: 50 ML 10X1
  16. BEPANTHEN [Concomitant]
  17. LARGACTIL [Concomitant]
     Dosage: 10 MG, QID
  18. CIPRO [Concomitant]
     Dosage: 200 MG, BID
  19. LUMIN [Concomitant]
     Dosage: 100 MG, QD
     Route: 042
  20. ORNIDAZOLE [Concomitant]
     Dosage: 500 MG, BID
     Route: 042
  21. ACYCLOVIR [Concomitant]
     Dosage: 200 MG, BID
     Route: 042

REACTIONS (5)
  - ABDOMINAL PAIN [None]
  - HAEMATEMESIS [None]
  - HAEMATOCRIT DECREASED [None]
  - MELAENA [None]
  - STEM CELL TRANSPLANT [None]
